FAERS Safety Report 8137943-1 (Version None)
Quarter: 2012Q1

REPORT INFORMATION
  Report Type: 
  Country: None (occurrence: None)
  Receive Date: 20120103
  Receipt Date: 20110904
  Transmission Date: 20120608
  Serious: No
  Sender: FDA-Public Use
  Company Number: AE-2011-001324

PATIENT
  Age: 56 Year
  Sex: Male
  Weight: 117.9352 kg

DRUGS (8)
  1. GENERLAC (LACTULOSE) [Concomitant]
  2. INCIVEK [Suspect]
     Dosage: 2250 MG (750 MG, 1 IN 8 HR), ORAL
     Route: 048
     Dates: start: 20110903
  3. RIBAPAK (RIBAVIRIN) [Concomitant]
  4. LUMIGAN [Concomitant]
  5. PEGASYS [Concomitant]
  6. LISINOPRIL [Concomitant]
  7. HUMALOG MIX 75/25 [Suspect]
  8. FISH OIL (FISH OIL) [Concomitant]

REACTIONS (1)
  - INFLUENZA LIKE ILLNESS [None]
